FAERS Safety Report 4946253-2 (Version None)
Quarter: 2006Q1

REPORT INFORMATION
  Report Type: 
  Country: None (occurrence: None)
  Receive Date: 20060317
  Receipt Date: 20060125
  Transmission Date: 20060701
  Serious: Yes (Hospitalization)
  Sender: FDA-Public Use
  Company Number: US-SANOFI-SYNTHELABO-A01200600562

PATIENT
  Sex: Female
  Weight: 61 kg

DRUGS (8)
  1. DILTIAZEM [Suspect]
     Indication: ILL-DEFINED DISORDER
     Dosage: 180 MG
     Route: 065
  2. PLAVIX [Suspect]
     Dosage: UNK
     Route: 048
  3. REQUIP [Concomitant]
     Indication: ILL-DEFINED DISORDER
     Dosage: UNK
     Route: 065
     Dates: start: 20050801
  4. LABETALOL HCL [Concomitant]
     Indication: ILL-DEFINED DISORDER
     Dosage: UNK
     Route: 065
  5. ZOLOFT [Concomitant]
     Indication: ILL-DEFINED DISORDER
     Dosage: UNK
     Route: 065
  6. ASPIRIN [Concomitant]
     Indication: DRUG USE FOR UNKNOWN INDICATION
     Dosage: UNK
     Route: 065
  7. HYZAAR [Concomitant]
     Indication: ILL-DEFINED DISORDER
     Dosage: UNK
     Route: 065
  8. CARBIDOPA [Concomitant]
     Indication: ILL-DEFINED DISORDER
     Dosage: UNK
     Route: 065

REACTIONS (6)
  - CARDIAC ARREST [None]
  - FEMUR FRACTURE [None]
  - HIP FRACTURE [None]
  - OSTEOARTHRITIS [None]
  - PNEUMONIA [None]
  - THROMBOSIS [None]
